FAERS Safety Report 9411448 (Version 3)
Quarter: 2014Q1

REPORT INFORMATION
  Report Type: Report from Study
  Country: JP (occurrence: JP)
  Receive Date: 20130722
  Receipt Date: 20140224
  Transmission Date: 20141002
  Serious: Yes (Hospitalization)
  Sender: FDA-Public Use
  Company Number: JP-PFIZER INC-2013182540

PATIENT
  Age: 68 Year
  Sex: Male
  Weight: 45.4 kg

DRUGS (16)
  1. CRIZOTINIB [Suspect]
     Indication: NON-SMALL CELL LUNG CANCER
     Dosage: 250 MG, 2X/DAY
     Route: 048
     Dates: start: 20130402, end: 20130412
  2. NEXIUM [Concomitant]
     Dosage: 20 MG, 1X/DAY
     Route: 048
     Dates: start: 20130307, end: 20130502
  3. NOVAMIN [Concomitant]
     Dosage: 5 MG, 3X/DAY
     Route: 048
     Dates: start: 20130307, end: 20130502
  4. MAG-LAX [Concomitant]
     Dosage: 330 MG, 3X/DAY
     Route: 048
     Dates: start: 20130307, end: 20130502
  5. PERAPRIN [Concomitant]
     Dosage: 5 MG, 3X/DAY
     Route: 048
     Dates: start: 20130307, end: 20130502
  6. TRAVELMIN [Concomitant]
     Dosage: UNK, 3X/DAY, 1 TABLET EACH TIME
     Route: 048
     Dates: start: 20130326
  7. LOXONIN [Concomitant]
     Dosage: 60 MG, 3X/DAY
     Route: 048
     Dates: start: 201302, end: 20130502
  8. CYTOTEC [Concomitant]
     Dosage: 200 UG, 3X/DAY
     Route: 048
     Dates: start: 201302, end: 20130502
  9. MICARDIS [Concomitant]
     Dosage: 40 MG, 1X/DAY
     Route: 048
     Dates: end: 20130502
  10. NORVASC [Concomitant]
     Dosage: 5 MG, 1X/DAY
     Route: 048
     Dates: end: 20130502
  11. ZETIA [Concomitant]
     Dosage: 10 MG, 1X/DAY
     Route: 048
     Dates: end: 20130502
  12. MOHRUS [Concomitant]
     Dosage: UNK
     Route: 062
     Dates: start: 20130402, end: 20130602
  13. FENTOS [Concomitant]
     Dosage: UNK
     Route: 062
     Dates: start: 20130327, end: 20130510
  14. LOCHOL [Concomitant]
     Dosage: 20 MG, 1X/DAY
     Route: 048
     Dates: start: 2013, end: 20130501
  15. BAYASPIRIN [Concomitant]
     Dosage: 100 MG, 1X/DAY
     Route: 048
     Dates: start: 2013, end: 20130501
  16. OXINORM (OXYCODONE HYDROCHLORIDE) [Concomitant]
     Dosage: 10 MG, AS NEEDED
     Dates: start: 20130307, end: 20130519

REACTIONS (1)
  - Interstitial lung disease [Recovering/Resolving]
